FAERS Safety Report 19321598 (Version 1)
Quarter: 2021Q2

REPORT INFORMATION
  Report Type: Spontaneous
  Country: US (occurrence: US)
  Receive Date: 20210528
  Receipt Date: 20210528
  Transmission Date: 20210717
  Serious: No
  Sender: FDA-Public Use
  Company Number: US-B.I. PHARMACEUTICALS,INC./RIDGEFIELD-2021-BI-105833

PATIENT

DRUGS (2)
  1. ACTEMRA [Concomitant]
     Active Substance: TOCILIZUMAB
     Indication: SYSTEMIC SCLEROSIS PULMONARY
  2. OFEV [Suspect]
     Active Substance: NINTEDANIB
     Indication: PRODUCT USED FOR UNKNOWN INDICATION
     Dates: start: 2021

REACTIONS (1)
  - Liver disorder [Unknown]
